FAERS Safety Report 11444530 (Version 1)
Quarter: 2015Q3

REPORT INFORMATION
  Report Type: Spontaneous
  Country: AU (occurrence: AU)
  Receive Date: 20150902
  Receipt Date: 20150902
  Transmission Date: 20151125
  Serious: Yes (Other)
  Sender: FDA-Public Use
  Company Number: AU-CIPLA LTD.-2015AU06932

PATIENT

DRUGS (8)
  1. GEMCITABINE [Suspect]
     Active Substance: GEMCITABINE\GEMCITABINE HYDROCHLORIDE
     Indication: UTERINE LEIOMYOSARCOMA
     Dosage: UNK
     Route: 065
  2. TRABECTADIN [Suspect]
     Active Substance: TRABECTEDIN
     Indication: PALLIATIVE CARE
     Route: 065
  3. IFOSFAMIDE. [Suspect]
     Active Substance: IFOSFAMIDE
     Indication: PALLIATIVE CARE
     Route: 065
  4. ANASTROZOLE. [Suspect]
     Active Substance: ANASTROZOLE
     Indication: PALLIATIVE CARE
     Route: 065
  5. GEMCITABINE [Suspect]
     Active Substance: GEMCITABINE\GEMCITABINE HYDROCHLORIDE
     Indication: METASTASES TO LUNG
  6. GEMCITABINE [Suspect]
     Active Substance: GEMCITABINE\GEMCITABINE HYDROCHLORIDE
     Indication: METASTASES TO THYROID
  7. DOXORUBICIN [Suspect]
     Active Substance: DOXORUBICIN
     Indication: PALLIATIVE CARE
     Route: 065
  8. PAZOPANIB [Suspect]
     Active Substance: PAZOPANIB
     Indication: PALLIATIVE CARE
     Route: 065

REACTIONS (7)
  - Drug effect decreased [Unknown]
  - Hypoxia [Not Recovered/Not Resolved]
  - Dyspnoea [Recovering/Resolving]
  - Fatigue [Recovering/Resolving]
  - Arthralgia [Recovering/Resolving]
  - Anaemia [Recovering/Resolving]
  - Arteriovenous malformation [Unknown]
